FAERS Safety Report 7421827-8 (Version None)
Quarter: 2011Q2

REPORT INFORMATION
  Report Type: 
  Country: None (occurrence: None)
  Receive Date: 20110407
  Receipt Date: 20110328
  Transmission Date: 20111010
  Serious: Yes (Death, Hospitalization)
  Sender: FDA-Public Use
  Company Number: UTC-005354

PATIENT
  Age: 57 Year
  Sex: Female
  Weight: 54.54 kg

DRUGS (3)
  1. COUMADIN [Concomitant]
  2. DIURETICS (DIURETICS) [Concomitant]
  3. REMODULIN [Suspect]
     Dosage: 129.6 UG/KG (0.09 UG/KG,1 IN 1 MIN), INTRAVENOUS
     Route: 042
     Dates: start: 20100304

REACTIONS (2)
  - PULMONARY HYPERTENSION [None]
  - DISEASE PROGRESSION [None]
